FAERS Safety Report 4683105-X (Version None)
Quarter: 2005Q2

REPORT INFORMATION
  Report Type: 
  Country: None (occurrence: None)
  Receive Date: 20050602
  Receipt Date: 20050307
  Transmission Date: 20051028
  Serious: No
  Sender: FDA-Public Use
  Company Number: USA050392573

PATIENT
  Age: 74 Year
  Sex: Male

DRUGS (5)
  1. CYMBALTA [Suspect]
     Indication: PAIN
     Dosage: 30 MG DAY
     Dates: start: 20041101, end: 20050201
  2. AMIODARONE [Concomitant]
  3. DARVOCET-N 100 [Concomitant]
  4. NEXIUM [Concomitant]
  5. FENTANYL [Concomitant]

REACTIONS (9)
  - ASTHENIA [None]
  - CONFUSIONAL STATE [None]
  - CONSTIPATION [None]
  - FATIGUE [None]
  - LETHARGY [None]
  - RASH [None]
  - SOMNOLENCE [None]
  - TREMOR [None]
  - WEIGHT DECREASED [None]
